FAERS Safety Report 5925589-2 (Version None)
Quarter: 2008Q4

REPORT INFORMATION
  Report Type: 
  Country: None (occurrence: None)
  Receive Date: 20081021
  Receipt Date: 20081017
  Transmission Date: 20090506
  Serious: Yes (Disabling)
  Sender: FDA-Public Use
  Company Number: A0748709A

PATIENT
  Age: 33 Year
  Sex: Female
  Weight: 64.3 kg

DRUGS (9)
  1. ADVAIR DISKUS 100/50 [Suspect]
     Indication: ASTHMA
     Dosage: 1PUFF TWICE PER DAY
     Route: 055
     Dates: start: 20060518, end: 20080910
  2. MEDROL [Concomitant]
     Dosage: 40MG SINGLE DOSE
     Dates: start: 20061011
  3. ELIDEL [Concomitant]
     Dates: start: 20080509
  4. ALLEGRA-D [Concomitant]
     Dates: start: 20061120
  5. ALBUTEROL [Concomitant]
     Dates: start: 20060510
  6. PREDNISONE TAB [Concomitant]
     Dates: start: 20070827
  7. AUGMENTIN '125' [Concomitant]
     Dates: start: 20061120
  8. CALCIUM [Concomitant]
     Indication: OSTEOPOROSIS
  9. ZYRTEC [Concomitant]

REACTIONS (1)
  - ALOPECIA [None]
